FAERS Safety Report 5214386-1 (Version None)
Quarter: 2007Q1

REPORT INFORMATION
  Report Type: 
  Country: None (occurrence: None)
  Receive Date: 20070122
  Receipt Date: 20070119
  Transmission Date: 20070707
  Serious: Yes (Life-Threatening, Hospitalization)
  Sender: FDA-Public Use
  Company Number: DE-GLAXOSMITHKLINE-D0051711A

PATIENT
  Age: 23 Year
  Sex: Female

DRUGS (5)
  1. VIANI FORTE [Suspect]
     Dosage: 550UG TWICE PER DAY
     Route: 055
     Dates: start: 20061001, end: 20061201
  2. NOVOPULMON [Concomitant]
     Indication: ASTHMA
     Route: 055
  3. CICLESONIDE [Concomitant]
     Indication: ASTHMA
     Dosage: 160MG TWICE PER DAY
     Route: 055
  4. BRONCHODILATOR UNSPECIFIED [Concomitant]
     Indication: ASTHMA
     Route: 065
  5. DILTIAZEM HCL [Concomitant]
     Dosage: 120MG TWICE PER DAY
     Route: 048

REACTIONS (3)
  - ASTHMA [None]
  - DRUG INEFFECTIVE [None]
  - LUNG DISORDER [None]
